FAERS Safety Report 15969751 (Version 1)
Quarter: 2019Q1

REPORT INFORMATION
  Report Type: Spontaneous
  Country: CN (occurrence: CN)
  Receive Date: 20190215
  Receipt Date: 20190215
  Transmission Date: 20190418
  Serious: Yes (Hospitalization)
  Sender: FDA-Public Use
  Company Number: CN-ELI_LILLY_AND_COMPANY-CN201902004234

PATIENT
  Age: 55 Year
  Sex: Male
  Weight: 67.5 kg

DRUGS (2)
  1. HUMALOG MIX75/25 [Suspect]
     Active Substance: INSULIN LISPRO
     Indication: TYPE 2 DIABETES MELLITUS
     Dosage: 16 U, BID
     Route: 058
     Dates: start: 20181023, end: 20190114
  2. HUMULIN 70/30 [Suspect]
     Active Substance: INSULIN HUMAN
     Indication: TYPE 2 DIABETES MELLITUS
     Dosage: UNK UNK, UNKNOWN
     Route: 058
     Dates: start: 20190116, end: 20190119

REACTIONS (6)
  - Drug hypersensitivity [Unknown]
  - Injection site pruritus [Unknown]
  - Drug-induced liver injury [Unknown]
  - Tuberculosis [Unknown]
  - Dermatitis allergic [Unknown]
  - Rhinoscleroma [Unknown]

NARRATIVE: CASE EVENT DATE: 2018
